FAERS Safety Report 13615783 (Version 1)
Quarter: 2017Q2

REPORT INFORMATION
  Report Type: Spontaneous
  Country: US (occurrence: US)
  Receive Date: 20170605
  Receipt Date: 20170605
  Transmission Date: 20170830
  Serious: Yes (Hospitalization)
  Sender: FDA-Public Use
  Company Number: None

PATIENT
  Age: 65 Year
  Sex: Male
  Weight: 117.3 kg

DRUGS (2)
  1. METOLAZONE. [Suspect]
     Active Substance: METOLAZONE
     Indication: CARDIAC FAILURE CONGESTIVE
     Route: 048
     Dates: start: 20140108, end: 20140114
  2. METOLAZONE. [Suspect]
     Active Substance: METOLAZONE
     Indication: RENAL IMPAIRMENT
     Route: 048
     Dates: start: 20140108, end: 20140114

REACTIONS (2)
  - Erythema [None]
  - Periorbital oedema [None]

NARRATIVE: CASE EVENT DATE: 20140114
